FAERS Safety Report 4330040-2 (Version None)
Quarter: 2004Q1

REPORT INFORMATION
  Report Type: 
  Country: None (occurrence: None)
  Receive Date: 20040329
  Receipt Date: 20040318
  Transmission Date: 20041129
  Serious: Yes (Death)
  Sender: FDA-Public Use
  Company Number: 2004AP01748

PATIENT
  Age: 61 Year
  Sex: Female

DRUGS (4)
  1. IRESSA [Suspect]
     Indication: PHLEBITIS
     Dosage: 250 MG DAILY PO
     Route: 048
     Dates: start: 20031113, end: 20031125
  2. PLAVIX [Suspect]
     Indication: COAGULOPATHY
     Dosage: 75 MG DAILY PO
     Route: 048
  3. ESOMEPRAZOLE [Concomitant]
  4. ENOXAPARIN SODIUM [Suspect]
     Indication: PHLEBITIS
     Dosage: 80 MG DAILY SQ
     Route: 058

REACTIONS (2)
  - GASTROINTESTINAL HAEMORRHAGE [None]
  - PANCREATITIS [None]
